FAERS Safety Report 9133401 (Version 1)
Quarter: 2013Q1

REPORT INFORMATION
  Report Type: Spontaneous
  Country: US (occurrence: US)
  Receive Date: 20130301
  Receipt Date: 20130301
  Transmission Date: 20140127
  Serious: No
  Sender: FDA-Public Use
  Company Number: US-009507513-1302USA010787

PATIENT
  Sex: Female

DRUGS (5)
  1. JANUMET [Suspect]
     Indication: BLOOD GLUCOSE INCREASED
     Dosage: 1 DF, BID
     Route: 048
     Dates: start: 2009, end: 201210
  2. JANUMET [Suspect]
     Dosage: 1 DF, BID
     Route: 048
     Dates: start: 201211
  3. BYETTA [Suspect]
  4. CRESTOR [Concomitant]
  5. ADVIL [Concomitant]

REACTIONS (4)
  - Hypercalcaemia [Not Recovered/Not Resolved]
  - Abdominal pain [Not Recovered/Not Resolved]
  - Myalgia [Unknown]
  - Premature menopause [Not Recovered/Not Resolved]
